FAERS Safety Report 24304483 (Version 1)
Quarter: 2024Q3

REPORT INFORMATION
  Report Type: Spontaneous
  Country: US (occurrence: None)
  Receive Date: 20240910
  Receipt Date: 20240910
  Transmission Date: 20241017
  Serious: No
  Sender: Public
  Company Number: None

PATIENT
  Age: 58 Year
  Sex: Male

DRUGS (1)
  1. CAPECITABINE [Suspect]
     Active Substance: CAPECITABINE
     Indication: Colon cancer

REACTIONS (3)
  - Dehydration [None]
  - Blood sodium decreased [None]
  - Electrolyte imbalance [None]

NARRATIVE: CASE EVENT DATE: 20240909
